FAERS Safety Report 26101565 (Version 1)
Quarter: 2025Q4

REPORT INFORMATION
  Report Type: Spontaneous
  Country: CN (occurrence: CN)
  Receive Date: 20251128
  Receipt Date: 20251128
  Transmission Date: 20260118
  Serious: Yes (Other)
  Sender: RANBAXY
  Company Number: CN-SUN PHARMACEUTICAL INDUSTRIES LTD-2025R1-536543

PATIENT
  Age: 37 Year
  Sex: Female
  Weight: 44 kg

DRUGS (4)
  1. TERIPARATIDE [Suspect]
     Active Substance: TERIPARATIDE
     Indication: Hypophosphatasia
     Dosage: 20 MICROGRAM, DAILY
     Route: 058
  2. CALCITRIOL [Suspect]
     Active Substance: CALCITRIOL
     Indication: Hypophosphatasia
     Dosage: 0.25 MICROGRAM, EVERY OTHER DAY
     Route: 065
  3. CALCIUM [Suspect]
     Active Substance: CALCIUM
     Indication: Hypophosphatasia
     Dosage: UNK, DAILY
     Route: 065
  4. ASFOTASE ALFA [Concomitant]
     Active Substance: ASFOTASE ALFA
     Indication: Hypophosphatasia
     Dosage: UNK
     Route: 065

REACTIONS (1)
  - Treatment failure [Unknown]
